FAERS Safety Report 7392512-6 (Version None)
Quarter: 2011Q2

REPORT INFORMATION
  Report Type: 
  Country: None (occurrence: None)
  Receive Date: 20110404
  Receipt Date: 20110327
  Transmission Date: 20111010
  Serious: Yes (Other)
  Sender: FDA-Public Use
  Company Number: US-AMGEN-USASP2011016351

PATIENT
  Age: 39 Year
  Sex: Female

DRUGS (1)
  1. ENBREL [Suspect]
     Indication: PSORIASIS
     Dosage: 50 MG, 2 TIMES/WK
     Dates: start: 20110311

REACTIONS (6)
  - DIZZINESS [None]
  - DYSPNOEA [None]
  - NERVOUSNESS [None]
  - DYSPHEMIA [None]
  - INCORRECT DOSE ADMINISTERED [None]
  - TREMOR [None]
